FAERS Safety Report 13211113 (Version 1)
Quarter: 2017Q1

REPORT INFORMATION
  Report Type: Spontaneous
  Country: US (occurrence: US)
  Receive Date: 20170210
  Receipt Date: 20170210
  Transmission Date: 20170428
  Serious: No
  Sender: FDA-Public Use
  Company Number: US-PFIZER INC-2017052443

PATIENT
  Age: 55 Year
  Sex: Male

DRUGS (1)
  1. VIAGRA [Suspect]
     Active Substance: SILDENAFIL CITRATE
     Indication: ERECTILE DYSFUNCTION
     Dosage: 50 MG, UNK (HALF OF A 100 MG TABLET) (2 HOURS AFTER EATING)

REACTIONS (5)
  - Headache [Unknown]
  - Drug ineffective [Unknown]
  - Prescription drug used without a prescription [Unknown]
  - Heart rate increased [Unknown]
  - Circumstance or information capable of leading to medication error [Unknown]
